FAERS Safety Report 6941232-8 (Version None)
Quarter: 2010Q3

REPORT INFORMATION
  Report Type: 
  Country: None (occurrence: None)
  Receive Date: 20100825
  Receipt Date: 20100714
  Transmission Date: 20110219
  Serious: No
  Sender: FDA-Public Use
  Company Number: US-BRISTOL-MYERS SQUIBB COMPANY-15186117

PATIENT
  Age: 52 Year
  Sex: Female

DRUGS (4)
  1. ONGLYZA [Suspect]
     Dosage: DURATION OF THERAPY: 6WKS AGO
     Dates: start: 20100101, end: 20100101
  2. METFORMIN HCL [Concomitant]
  3. AMARYL [Concomitant]
  4. JANUVIA [Concomitant]

REACTIONS (1)
  - NAUSEA [None]
